FAERS Safety Report 25790192 (Version 1)
Quarter: 2025Q3

REPORT INFORMATION
  Report Type: Spontaneous
  Country: EU (occurrence: EU)
  Receive Date: 20250911
  Receipt Date: 20250911
  Transmission Date: 20251021
  Serious: Yes (Other)
  Sender: AUROBINDO
  Company Number: EU-BRISTOL-MYERS SQUIBB COMPANY-2025-118417

PATIENT
  Age: 67 Year
  Sex: Male
  Weight: 90 kg

DRUGS (13)
  1. CARBOPLATIN [Suspect]
     Active Substance: CARBOPLATIN
     Indication: Non-small cell lung cancer
     Route: 042
     Dates: start: 20250523
  2. CARBOPLATIN [Suspect]
     Active Substance: CARBOPLATIN
     Route: 042
     Dates: start: 20250613
  3. CARBOPLATIN [Suspect]
     Active Substance: CARBOPLATIN
     Route: 042
     Dates: start: 20250714
  4. CARBOPLATIN [Suspect]
     Active Substance: CARBOPLATIN
  5. NIVOLUMAB [Suspect]
     Active Substance: NIVOLUMAB
     Indication: Non-small cell lung cancer
     Route: 042
     Dates: start: 20250523, end: 20250714
  6. PACLITAXEL [Suspect]
     Active Substance: PACLITAXEL
     Indication: Non-small cell lung cancer
     Route: 042
     Dates: start: 20250523
  7. PACLITAXEL [Suspect]
     Active Substance: PACLITAXEL
     Route: 042
     Dates: start: 20250530
  8. PACLITAXEL [Suspect]
     Active Substance: PACLITAXEL
     Route: 042
     Dates: start: 20250606
  9. PACLITAXEL [Suspect]
     Active Substance: PACLITAXEL
     Route: 042
     Dates: start: 20250613
  10. PACLITAXEL [Suspect]
     Active Substance: PACLITAXEL
     Route: 042
     Dates: start: 20250620
  11. PACLITAXEL [Suspect]
     Active Substance: PACLITAXEL
     Route: 042
     Dates: start: 20250704
  12. PACLITAXEL [Suspect]
     Active Substance: PACLITAXEL
     Route: 042
     Dates: start: 20250711
  13. PACLITAXEL [Suspect]
     Active Substance: PACLITAXEL
     Route: 042
     Dates: start: 20250718

REACTIONS (1)
  - Immune-mediated lung disease [Not Recovered/Not Resolved]

NARRATIVE: CASE EVENT DATE: 20250818
